FAERS Safety Report 9161195 (Version 1)
Quarter: 2013Q1

REPORT INFORMATION
  Report Type: Spontaneous
  Country: IT (occurrence: IT)
  Receive Date: 20130313
  Receipt Date: 20130313
  Transmission Date: 20140127
  Serious: Yes (Other)
  Sender: FDA-Public Use
  Company Number: IT-009507513-1303ITA003758

PATIENT
  Age: 7 Year
  Sex: Female

DRUGS (1)
  1. DESLORATADINE [Suspect]
     Indication: DERMATITIS ATOPIC
     Dosage: 5 MG, QD
     Route: 048

REACTIONS (1)
  - Petit mal epilepsy [Recovering/Resolving]
